FAERS Safety Report 16727533 (Version 3)
Quarter: 2021Q3

REPORT INFORMATION
  Report Type: Spontaneous
  Country: US (occurrence: US)
  Receive Date: 20190822
  Receipt Date: 20210831
  Transmission Date: 20211014
  Serious: Yes (Hospitalization, Other)
  Sender: FDA-Public Use
  Company Number: US-PFIZER INC-2019357956

PATIENT
  Age: 79 Year
  Sex: Female
  Weight: 57.14 kg

DRUGS (2)
  1. XELJANZ [Suspect]
     Active Substance: TOFACITINIB CITRATE
     Indication: RHEUMATOID ARTHRITIS
     Dosage: 5 MG, 2X/DAY
     Route: 048
     Dates: start: 201901
  2. XELJANZ [Suspect]
     Active Substance: TOFACITINIB CITRATE
     Indication: ARTHRITIS

REACTIONS (4)
  - Femur fracture [Unknown]
  - Arthropathy [Not Recovered/Not Resolved]
  - Condition aggravated [Not Recovered/Not Resolved]
  - Arthralgia [Unknown]
